FAERS Safety Report 11347322 (Version 2)
Quarter: 2015Q4

REPORT INFORMATION
  Report Type: Spontaneous
  Country: FR (occurrence: FR)
  Receive Date: 20150806
  Receipt Date: 20151117
  Transmission Date: 20160304
  Serious: Yes (Other)
  Sender: FDA-Public Use
  Company Number: FR-PFIZER INC-2015255996

PATIENT
  Age: 77 Year
  Sex: Female

DRUGS (10)
  1. ARAVA [Concomitant]
     Active Substance: LEFLUNOMIDE
     Indication: POLYARTHRITIS
  2. AMLOR [Suspect]
     Active Substance: AMLODIPINE BESYLATE
     Dosage: 5 MG, UNK
     Route: 048
     Dates: start: 201503, end: 201507
  3. CALCIDOSE /07357001/ [Concomitant]
     Active Substance: CALCIUM CARBONATE
     Indication: POLYARTHRITIS
  4. COTAREG [Concomitant]
     Active Substance: HYDROCHLOROTHIAZIDE\VALSARTAN
  5. LANZOR [Concomitant]
     Active Substance: LANSOPRAZOLE
  6. FLECTOR /00372302/ [Suspect]
     Active Substance: DICLOFENAC SODIUM
     Dosage: UNK
     Route: 003
     Dates: end: 201507
  7. PREVISCAN /00789001/ [Suspect]
     Active Substance: FLUINDIONE
     Dosage: 20 MG, UNK
     Route: 048
     Dates: start: 201503
  8. CORTANCYL [Concomitant]
     Active Substance: PREDNISONE
     Indication: POLYARTHRITIS
  9. UVEDOSE [Concomitant]
     Active Substance: CHOLECALCIFEROL
     Indication: POLYARTHRITIS
  10. MOPRAL /00661201/ [Suspect]
     Active Substance: OMEPRAZOLE SODIUM
     Dosage: 20 MG, UNK
     Route: 048
     Dates: end: 201507

REACTIONS (2)
  - Colitis microscopic [Recovered/Resolved]
  - Gastritis [Recovered/Resolved]

NARRATIVE: CASE EVENT DATE: 201505
